FAERS Safety Report 9201940 (Version 1)
Quarter: 2013Q2

REPORT INFORMATION
  Report Type: Report from Study
  Country: CA (occurrence: CA)
  Receive Date: 20130401
  Receipt Date: 20130401
  Transmission Date: 20140414
  Serious: Yes (Death)
  Sender: FDA-Public Use
  Company Number: CA-ROCHE-1208269

PATIENT
  Sex: Female
  Weight: 85.3 kg

DRUGS (14)
  1. RITUXAN [Suspect]
     Indication: RHEUMATOID ARTHRITIS
     Route: 042
     Dates: start: 20100608, end: 20110315
  2. DIPHENHYDRAMINE HCL [Concomitant]
     Indication: PREMEDICATION
     Route: 048
     Dates: start: 20100608, end: 20110315
  3. ACETAMINOPHEN [Concomitant]
     Indication: PREMEDICATION
     Route: 048
     Dates: start: 20100608, end: 20110315
  4. LOPRESSOR [Concomitant]
     Indication: BLOOD PRESSURE
  5. ALTACE [Concomitant]
     Indication: BLOOD PRESSURE
  6. METFORMIN [Concomitant]
  7. DIXARIT [Concomitant]
  8. BIOCAL D [Concomitant]
  9. ALENDRONATE [Concomitant]
  10. EURO-FOLIC [Concomitant]
  11. VITAMIN B6 [Concomitant]
  12. TYLENOL [Concomitant]
  13. METHYLPREDNISOLONE [Concomitant]
     Indication: PREMEDICATION
     Route: 042
     Dates: start: 20100608, end: 20110515
  14. METHOTREXATE [Concomitant]
     Route: 065

REACTIONS (1)
  - Death [Fatal]
